FAERS Safety Report 5556875-6 (Version None)
Quarter: 2007Q4

REPORT INFORMATION
  Report Type: 
  Country: None (occurrence: None)
  Receive Date: 20071211
  Receipt Date: 20071211
  Transmission Date: 20080405
  Serious: Yes (Hospitalization)
  Sender: FDA-Public Use
  Company Number: None

PATIENT
  Age: 66 Year
  Sex: Female
  Weight: 72 kg

DRUGS (11)
  1. ELOXATIN [Suspect]
     Indication: COLORECTAL CANCER METASTATIC
     Dosage: 170 MG ONCE IV
     Route: 042
  2. ELOXATIN [Suspect]
  3. CETUXIMAB [Suspect]
     Indication: COLORECTAL CANCER METASTATIC
     Dosage: 440 MG ONCE IV
     Route: 042
  4. ERBITUX [Suspect]
  5. ACETAMINOPHEN/DIPHENHYDRAMINE [Concomitant]
  6. TYLENOL [Concomitant]
  7. TEKTURNA [Concomitant]
  8. DIAZEPAM [Concomitant]
  9. EPROSARTAN [Concomitant]
  10. FERROUS SULFATE TAB [Concomitant]
  11. HYDROCHLOROTHIAZIDE [Concomitant]

REACTIONS (12)
  - ANXIETY [None]
  - BACK PAIN [None]
  - CHEST PAIN [None]
  - FACIAL PAIN [None]
  - INFUSION RELATED REACTION [None]
  - MUSCULOSKELETAL PAIN [None]
  - NECK PAIN [None]
  - PAIN [None]
  - PAIN IN EXTREMITY [None]
  - PAIN IN JAW [None]
  - RASH [None]
  - VISUAL DISTURBANCE [None]
